FAERS Safety Report 8130248-4 (Version None)
Quarter: 2012Q1

REPORT INFORMATION
  Report Type: 
  Country: None (occurrence: None)
  Receive Date: 20120210
  Receipt Date: 20120203
  Transmission Date: 20120608
  Serious: Yes (Other)
  Sender: FDA-Public Use
  Company Number: PHHY2011US20100

PATIENT
  Sex: Female
  Weight: 64 kg

DRUGS (7)
  1. ANTICOAGULANTS [Concomitant]
     Indication: THROMBOSIS
  2. LEXAPRO [Concomitant]
     Dosage: UNK
  3. PROVIGIL [Concomitant]
     Dosage: UNK
  4. CLONAZEPAM [Concomitant]
     Dosage: UNK
  5. GILENYA [Suspect]
     Indication: MULTIPLE SCLEROSIS
     Dosage: 0.5 MG, QD
     Route: 048
     Dates: start: 20110303
  6. BACLOFEN [Concomitant]
     Dosage: UNK
  7. HYDROCODONE [Concomitant]
     Dosage: UNK

REACTIONS (9)
  - GAIT DISTURBANCE [None]
  - MENISCUS LESION [None]
  - MUSCULAR WEAKNESS [None]
  - MYALGIA [None]
  - TREMOR [None]
  - JOINT INJURY [None]
  - ARTHRALGIA [None]
  - JOINT DISLOCATION [None]
  - FALL [None]
